FAERS Safety Report 9096602 (Version 1)
Quarter: 2013Q1

REPORT INFORMATION
  Report Type: Spontaneous
  Country: IN (occurrence: None)
  Receive Date: 20130125
  Receipt Date: 20130125
  Transmission Date: 20140127
  Serious: Yes (Hospitalization)
  Sender: FDA-Public Use
  Company Number: VAL_01280_2013

PATIENT
  Age: 9 Year
  Sex: Female

DRUGS (1)
  1. CARBAMAZEPINE (CARBAMAZEPINE) CHEWABLE TABLET [Suspect]
     Indication: PRODUCT USED FOR UNKNOWN INDICATION
     Dosage: (DF)

REACTIONS (5)
  - Convulsion [None]
  - Educational problem [None]
  - Dizziness [None]
  - Petit mal epilepsy [None]
  - Excessive eye blinking [None]
